FAERS Safety Report 5827226-4 (Version None)
Quarter: 2008Q3

REPORT INFORMATION
  Report Type: 
  Country: None (occurrence: None)
  Receive Date: 20080730
  Receipt Date: 20080717
  Transmission Date: 20090109
  Serious: Yes (Death)
  Sender: FDA-Public Use
  Company Number: US-MERCK-0807USA03576

PATIENT
  Age: 70 Year
  Sex: Male

DRUGS (2)
  1. ZOLINZA [Suspect]
     Indication: MYCOSIS FUNGOIDES
     Route: 065
     Dates: start: 20080601
  2. TARGRETIN [Concomitant]
     Route: 065

REACTIONS (2)
  - HEPATIC ENZYME INCREASED [None]
  - MYCOSIS FUNGOIDES [None]
